FAERS Safety Report 11265952 (Version 4)
Quarter: 2015Q3

REPORT INFORMATION
  Report Type: Report from Study
  Country: US (occurrence: US)
  Receive Date: 20150713
  Receipt Date: 20150728
  Transmission Date: 20151125
  Serious: Yes (Hospitalization)
  Sender: FDA-Public Use
  Company Number: US-ACTELION-A-NJ2015-119084

PATIENT
  Age: 68 Year
  Sex: Female

DRUGS (2)
  1. TRACLEER [Suspect]
     Active Substance: BOSENTAN
     Indication: PULMONARY ARTERIAL HYPERTENSION
     Dosage: 125 MG, BID
     Route: 048
     Dates: start: 201109
  2. VENTAVIS [Suspect]
     Active Substance: ILOPROST
     Indication: PULMONARY ARTERIAL HYPERTENSION
     Dosage: 5 MCG, 6-9XDAILY
     Route: 055
     Dates: start: 20120327

REACTIONS (8)
  - Pleural effusion [Not Recovered/Not Resolved]
  - Urinary tract infection [Not Recovered/Not Resolved]
  - Condition aggravated [Recovering/Resolving]
  - Clostridium difficile colitis [Unknown]
  - Diverticulitis [Unknown]
  - Pulmonary arterial hypertension [Recovering/Resolving]
  - Anorectal swelling [Unknown]
  - Asthenia [Not Recovered/Not Resolved]
